FAERS Safety Report 20514704 (Version 4)
Quarter: 2022Q1

REPORT INFORMATION
  Report Type: Spontaneous
  Country: JP (occurrence: JP)
  Receive Date: 20220224
  Receipt Date: 20220307
  Transmission Date: 20220423
  Serious: Yes (Hospitalization)
  Sender: FDA-Public Use
  Company Number: JP-ALLERGAN-2206398US

PATIENT
  Sex: Male

DRUGS (2)
  1. ASENAPINE MALEATE [Suspect]
     Active Substance: ASENAPINE MALEATE
     Indication: Restlessness
     Dosage: 5 MG, QD
     Route: 060
  2. BLONANSERIN [Concomitant]
     Active Substance: BLONANSERIN
     Dosage: 40 MG, QD

REACTIONS (1)
  - Altered state of consciousness [Recovering/Resolving]
